FAERS Safety Report 19174228 (Version 1)
Quarter: 2021Q2

REPORT INFORMATION
  Report Type: Spontaneous
  Country: US (occurrence: US)
  Receive Date: 20210423
  Receipt Date: 20210423
  Transmission Date: 20210717
  Serious: Yes (Hospitalization, Other)
  Sender: FDA-Public Use
  Company Number: US-IBIGEN-2021.10085

PATIENT
  Age: 66 Year
  Sex: Male

DRUGS (6)
  1. NAFCILLIN [Suspect]
     Active Substance: NAFCILLIN SODIUM
     Indication: OSTEOMYELITIS
  2. CEFAZOLIN [Suspect]
     Active Substance: CEFAZOLIN
     Indication: OSTEOMYELITIS
  3. NAFCILLIN [Suspect]
     Active Substance: NAFCILLIN SODIUM
     Indication: OSTEOMYELITIS
  4. CEFAZOLIN [Suspect]
     Active Substance: CEFAZOLIN
     Indication: OSTEOMYELITIS
  5. METRONIDAZOLE. [Concomitant]
     Active Substance: METRONIDAZOLE
  6. METRONIDAZOLE. [Concomitant]
     Active Substance: METRONIDAZOLE
     Indication: OSTEOMYELITIS

REACTIONS (6)
  - Glomerulonephritis [Recovered/Resolved]
  - Rash morbilliform [Recovered/Resolved]
  - Proteinuria [Recovered/Resolved]
  - Cutaneous vasculitis [Unknown]
  - Condition aggravated [Recovered/Resolved]
  - Blood creatinine increased [Recovered/Resolved]
